FAERS Safety Report 7298616-0 (Version None)
Quarter: 2011Q1

REPORT INFORMATION
  Report Type: 
  Country: None (occurrence: None)
  Receive Date: 20110217
  Receipt Date: 20110215
  Transmission Date: 20110831
  Serious: Yes (Death)
  Sender: FDA-Public Use
  Company Number: PHHY2010US67615

PATIENT
  Sex: Male

DRUGS (5)
  1. REVLIMID [Concomitant]
     Dosage: 5 MG, DAILY X 21 DAYS
     Route: 048
     Dates: start: 20100528
  2. AMBIEN [Concomitant]
     Route: 048
  3. LORTAB [Concomitant]
     Route: 048
  4. EXJADE [Suspect]
     Indication: MYELODYSPLASTIC SYNDROME
     Dosage: 1500 MG, QD
     Route: 048
  5. MULTI-VITAMIN [Concomitant]
     Route: 048

REACTIONS (2)
  - NEOPLASM MALIGNANT [None]
  - ACUTE LEUKAEMIA [None]
